FAERS Safety Report 9665803 (Version 1)
Quarter: 2013Q4

REPORT INFORMATION
  Report Type: Spontaneous
  Country: FR (occurrence: FR)
  Receive Date: 20131104
  Receipt Date: 20131104
  Transmission Date: 20140711
  Serious: Yes (Hospitalization)
  Sender: FDA-Public Use
  Company Number: FR-ROCHE-1297984

PATIENT
  Age: 62 Year
  Sex: Female

DRUGS (3)
  1. ROACTEMRA [Suspect]
     Indication: RHEUMATOID ARTHRITIS
     Route: 042
     Dates: start: 201105, end: 20130924
  2. METOJECT [Suspect]
     Indication: RHEUMATOID ARTHRITIS
     Route: 048
  3. SPECIAFOLDINE [Suspect]
     Indication: RHEUMATOID ARTHRITIS
     Route: 048

REACTIONS (2)
  - Plasma cell myeloma [Not Recovered/Not Resolved]
  - Swelling [Not Recovered/Not Resolved]
